FAERS Safety Report 7538830 (Version 21)
Quarter: 2014Q3

REPORT INFORMATION
  Report Type: Spontaneous
  Country: PR (occurrence: PR)
  Receive Date: 20100812
  Receipt Date: 20140923
  Transmission Date: 20150326
  Serious: Yes (Hospitalization)
  Sender: FDA-Public Use
  Company Number: PR-JNJFOC-20100800633

PATIENT
  Age: 37 Year
  Sex: Female
  Weight: 64.86 kg

DRUGS (10)
  1. CARAFATE [Concomitant]
     Active Substance: SUCRALFATE
     Indication: PAIN
     Route: 065
  2. TYLENOL EXTRA STRENGTH [Suspect]
     Active Substance: ACETAMINOPHEN
     Route: 048
  3. TYLENOL EXTRA STRENGTH [Suspect]
     Active Substance: ACETAMINOPHEN
     Indication: MIGRAINE
     Route: 048
     Dates: start: 20091228, end: 20100105
  4. BUTALBITAL AND ACETAMINOPHEN [Suspect]
     Active Substance: ACETAMINOPHEN\BUTALBITAL
     Indication: PRODUCT USED FOR UNKNOWN INDICATION
  5. NEXIUM [Concomitant]
     Active Substance: ESOMEPRAZOLE MAGNESIUM
     Indication: PRODUCT USED FOR UNKNOWN INDICATION
     Route: 065
  6. PREDNISONE. [Concomitant]
     Active Substance: PREDNISONE
  7. PRISTIQ EXTENDED RELEASE [Concomitant]
     Active Substance: DESVENLAFAXINE SUCCINATE
  8. TYLENOL [Suspect]
     Active Substance: ACETAMINOPHEN
     Route: 048
  9. TYLENOL [Suspect]
     Active Substance: ACETAMINOPHEN
     Indication: MIGRAINE
     Dosage: 2 TABLETS EVERY FOUR HOURS, 8 TABLETS DAILY
     Route: 048
     Dates: start: 20091225, end: 20091228
  10. PERCOCET [Suspect]
     Active Substance: ACETAMINOPHEN\OXYCODONE HYDROCHLORIDE
     Indication: PRODUCT USED FOR UNKNOWN INDICATION

REACTIONS (5)
  - Acute hepatic failure [Recovering/Resolving]
  - Overdose [Recovering/Resolving]
  - Atelectasis [Recovering/Resolving]
  - Product quality issue [Unknown]
  - Drug administration error [Recovered/Resolved with Sequelae]

NARRATIVE: CASE EVENT DATE: 20100105
